FAERS Safety Report 4561378-1 (Version None)
Quarter: 2005Q1

REPORT INFORMATION
  Report Type: 
  Country: None (occurrence: None)
  Receive Date: 20050121
  Receipt Date: 20050107
  Transmission Date: 20050727
  Serious: Yes (Hospitalization)
  Sender: FDA-Public Use
  Company Number: 044-0981-M0000017

PATIENT
  Age: 62 Year
  Sex: Male
  Weight: 71.2 kg

DRUGS (9)
  1. ATORVASTATIN (ATORVASTATIN) [Suspect]
     Indication: HYPERLIPIDAEMIA
     Dosage: 10 MG (DAILY), ORAL
     Route: 048
     Dates: start: 19990310, end: 19990511
  2. ATORVASTATIN (ATORVASTATIN) [Suspect]
     Indication: HYPERLIPIDAEMIA
     Dosage: 10 MG (DAILY), ORAL
     Route: 048
     Dates: start: 19990512
  3. DIGOXIN [Concomitant]
  4. FUROSEMIDE (FUROSEMIDE) [Concomitant]
  5. ISOSORBIDE MONONITRATE [Concomitant]
  6. ASPIRIN [Concomitant]
  7. WARFARIN SODIUM [Concomitant]
  8. LISINOPRIL [Concomitant]
  9. NITROGLYCERIN [Concomitant]

REACTIONS (6)
  - CARDIAC ARREST [None]
  - CARDIAC FAILURE CONGESTIVE [None]
  - CIRCULATORY COLLAPSE [None]
  - LOWER RESPIRATORY TRACT INFECTION [None]
  - MYOCARDIAL INFARCTION [None]
  - TRANSIENT ISCHAEMIC ATTACK [None]
